FAERS Safety Report 5867057-2 (Version None)
Quarter: 2008Q3

REPORT INFORMATION
  Report Type: 
  Country: None (occurrence: None)
  Receive Date: 20080902
  Receipt Date: 20080722
  Transmission Date: 20090109
  Serious: Yes (Death, Hospitalization)
  Sender: FDA-Public Use
  Company Number: B0531930A

PATIENT
  Sex: Female

DRUGS (9)
  1. ACYCLOVIR [Suspect]
     Indication: CONGENITAL HERPES SIMPLEX INFECTION
     Route: 065
  2. ZIDOVUDINE [Suspect]
     Indication: ANTIVIRAL PROPHYLAXIS
     Route: 065
  3. LAMIVUDINE [Suspect]
     Indication: ANTIVIRAL PROPHYLAXIS
     Route: 065
  4. NEVIRAPINE [Suspect]
     Indication: ANTIVIRAL PROPHYLAXIS
     Route: 065
  5. COMBIVIR [Suspect]
     Indication: ANTIVIRAL PROPHYLAXIS
  6. WARFARIN SODIUM [Suspect]
     Indication: THROMBOSIS PROPHYLAXIS
  7. METHADONE HCL [Suspect]
     Indication: REHABILITATION THERAPY
  8. KALETRA [Suspect]
     Indication: ANTIVIRAL PROPHYLAXIS
  9. HEPATITIS B VACCINE [Concomitant]
     Route: 065

REACTIONS (9)
  - ACIDOSIS [None]
  - CONGENITAL HERPES SIMPLEX INFECTION [None]
  - CONVULSION [None]
  - DISSEMINATED INTRAVASCULAR COAGULATION [None]
  - DRUG EXPOSURE DURING PREGNANCY [None]
  - DRUG RESISTANCE [None]
  - LIVER FUNCTION TEST ABNORMAL [None]
  - MALAISE [None]
  - PYREXIA [None]
